FAERS Safety Report 4867862-5 (Version None)
Quarter: 2005Q4

REPORT INFORMATION
  Report Type: 
  Country: None (occurrence: None)
  Receive Date: 20051228
  Receipt Date: 20051219
  Transmission Date: 20060501
  Serious: Yes (Death, Hospitalization)
  Sender: FDA-Public Use
  Company Number: BE-ABBOTT-05P-013-0320312-00

PATIENT
  Sex: Female

DRUGS (12)
  1. HUMIRA [Suspect]
     Indication: RHEUMATOID ARTHRITIS
     Route: 058
     Dates: start: 20040713, end: 20050209
  2. CILAZAPRIL [Concomitant]
     Indication: DRUG USE FOR UNKNOWN INDICATION
  3. MOLSIDOMINE [Concomitant]
     Indication: DRUG USE FOR UNKNOWN INDICATION
  4. MOLSIDOMINE [Concomitant]
  5. CARVEDILOL [Concomitant]
     Indication: DRUG USE FOR UNKNOWN INDICATION
  6. METHYLPREDNISOLONE [Concomitant]
     Indication: DRUG USE FOR UNKNOWN INDICATION
  7. FOLIUMACID [Concomitant]
     Indication: DRUG USE FOR UNKNOWN INDICATION
  8. ALENDRONATE SODIUM [Concomitant]
     Indication: DRUG USE FOR UNKNOWN INDICATION
  9. REMERGON [Concomitant]
     Indication: DRUG USE FOR UNKNOWN INDICATION
  10. SERTRALINE HCL [Concomitant]
     Indication: DRUG USE FOR UNKNOWN INDICATION
  11. SERTRALINE HCL [Concomitant]
  12. ZOLPIDEM TARTRATE [Concomitant]
     Indication: DRUG USE FOR UNKNOWN INDICATION

REACTIONS (8)
  - ASTHENIA [None]
  - ERYSIPELAS [None]
  - LUNG DISORDER [None]
  - RHONCHI [None]
  - TREMOR [None]
  - WHEEZING [None]
  - WOUND INFECTION [None]
  - WOUND INFECTION STAPHYLOCOCCAL [None]
